FAERS Safety Report 6198247-X (Version None)
Quarter: 2009Q2

REPORT INFORMATION
  Report Type: 
  Country: None (occurrence: None)
  Receive Date: 20090521
  Receipt Date: 20090514
  Transmission Date: 20091009
  Serious: Yes (Hospitalization)
  Sender: FDA-Public Use
  Company Number: US-BAYER-200911812NA

PATIENT
  Age: 77 Year
  Sex: Male
  Weight: 70 kg

DRUGS (8)
  1. DACARBAZINE [Suspect]
     Indication: METASTATIC MALIGNANT MELANOMA
     Route: 042
     Dates: start: 20080912, end: 20081212
  2. IMC - 1121B [Suspect]
     Indication: METASTATIC MALIGNANT MELANOMA
     Route: 042
     Dates: start: 20080912, end: 20081212
  3. MORPHINE [Concomitant]
     Indication: PAIN
     Dosage: TOTAL DAILY DOSE: 120 MG
     Route: 048
  4. PEGFILGRASTIM [Concomitant]
     Indication: DRUG USE FOR UNKNOWN INDICATION
     Dosage: TOTAL DAILY DOSE: 6 MG
     Route: 058
  5. PROCHLORPERAZINE [Concomitant]
     Indication: DRUG USE FOR UNKNOWN INDICATION
     Dosage: AS USED: 10 MG
     Route: 048
  6. METHYLPHENIDATE HCL [Concomitant]
     Indication: DRUG USE FOR UNKNOWN INDICATION
     Dosage: TOTAL DAILY DOSE: 10 MG
     Route: 048
  7. NEXIUM [Concomitant]
     Indication: DRUG USE FOR UNKNOWN INDICATION
     Dosage: TOTAL DAILY DOSE: 40 MG
     Route: 048
  8. ONDANSETRON [Concomitant]
     Indication: DRUG USE FOR UNKNOWN INDICATION
     Dosage: TOTAL DAILY DOSE: 8 MG
     Route: 048

REACTIONS (1)
  - RENAL FAILURE ACUTE [None]
